FAERS Safety Report 8536640-8 (Version None)
Quarter: 2012Q3

REPORT INFORMATION
  Report Type: 
  Country: None (occurrence: None)
  Receive Date: 20120725
  Receipt Date: 20120711
  Transmission Date: 20120928
  Serious: Yes (Other)
  Sender: FDA-Public Use
  Company Number: BR-ROCHE-1088761

PATIENT
  Sex: Male
  Weight: 82 kg

DRUGS (10)
  1. ATENOLOL [Concomitant]
     Indication: HYPERTENSION
  2. ATENOLOL [Concomitant]
     Indication: BLOOD CHOLESTEROL
  3. AMLODIPINE [Concomitant]
     Indication: HYPERTENSION
  4. AMLODIPINE [Concomitant]
     Indication: CARDIOMYOPATHY
  5. PLAVIX [Suspect]
     Indication: TENDONITIS
     Route: 048
     Dates: start: 20120707, end: 20120710
  6. ATENOLOL [Concomitant]
     Indication: BLOOD TRIGLYCERIDES
  7. AMLODIPINE [Concomitant]
     Indication: BLOOD TRIGLYCERIDES
  8. AMLODIPINE [Concomitant]
     Indication: BLOOD CHOLESTEROL
  9. ACETYLSALICYLIC ACID SRT [Concomitant]
     Indication: HYPERTENSION
     Dates: start: 20120401
  10. ATENOLOL [Concomitant]
     Indication: CARDIOMYOPATHY

REACTIONS (4)
  - HAEMATURIA [None]
  - ABDOMINAL DISTENSION [None]
  - DECREASED APPETITE [None]
  - PYREXIA [None]
